FAERS Safety Report 23155870 (Version 2)
Quarter: 2023Q4

REPORT INFORMATION
  Report Type: Spontaneous
  Country: US (occurrence: US)
  Receive Date: 20231107
  Receipt Date: 20231116
  Transmission Date: 20240110
  Serious: No
  Sender: FDA-Public Use
  Company Number: US-SANOFI-01825228

PATIENT
  Sex: Male

DRUGS (1)
  1. LANTUS SOLOSTAR [Suspect]
     Active Substance: INSULIN GLARGINE
     Dosage: 40 IU, QD; OVER THE YEARS THAT

REACTIONS (3)
  - Blood glucose fluctuation [Unknown]
  - Inappropriate schedule of product administration [Unknown]
  - Device mechanical issue [Unknown]
